FAERS Safety Report 18887127 (Version 1)
Quarter: 2021Q1

REPORT INFORMATION
  Report Type: Other
  Country: JP (occurrence: JP)
  Receive Date: 20210212
  Receipt Date: 20210212
  Transmission Date: 20210420
  Serious: Yes (Hospitalization, Other)
  Sender: FDA-Public Use
  Company Number: JP-BRECKENRIDGE PHARMACEUTICAL, INC.-2106686

PATIENT
  Age: 78 Year
  Sex: Male

DRUGS (2)
  1. TERBINAFINE HYDROCHLORIDE. [Suspect]
     Active Substance: TERBINAFINE HYDROCHLORIDE
     Indication: DERMATOPHYTOSIS OF NAIL
     Route: 048
  2. CLOTRIMAZOLE. [Concomitant]
     Active Substance: CLOTRIMAZOLE

REACTIONS (1)
  - Tubulointerstitial nephritis [None]
